FAERS Safety Report 23954174 (Version 1)
Quarter: 2024Q2

REPORT INFORMATION
  Report Type: Spontaneous
  Country: BR (occurrence: BR)
  Receive Date: 20240609
  Receipt Date: 20240609
  Transmission Date: 20240715
  Serious: Yes (Hospitalization, Other)
  Sender: FDA-Public Use
  Company Number: BR-SANDOZ-SDZ2023BR003590

PATIENT
  Age: 38 Year
  Sex: Female

DRUGS (3)
  1. DEXAMETHASONE [Suspect]
     Active Substance: DEXAMETHASONE
     Dosage: EVERY 6 HOURS
     Route: 065
  2. DEXAMETHASONE [Suspect]
     Active Substance: DEXAMETHASONE
     Indication: Product used for unknown indication
     Dosage: EVERY 6HRS
     Route: 065
  3. RIBOCICLIB [Concomitant]
     Active Substance: RIBOCICLIB
     Indication: Breast cancer
     Route: 065

REACTIONS (12)
  - Tremor [Recovered/Resolved]
  - Scratch [Unknown]
  - Bedridden [Recovered/Resolved]
  - Dyskinesia [Unknown]
  - Platelet count decreased [Unknown]
  - Intracranial tumour haemorrhage [Unknown]
  - Haemorrhage [Unknown]
  - Asthenia [Recovering/Resolving]
  - Sensitive skin [Unknown]
  - Blood glucose fluctuation [Recovering/Resolving]
  - Seizure [Recovered/Resolved]
  - Hypertension [Unknown]

NARRATIVE: CASE EVENT DATE: 20230707
